FAERS Safety Report 24293348 (Version 1)
Quarter: 2024Q3

REPORT INFORMATION
  Report Type: Spontaneous
  Country: US (occurrence: None)
  Receive Date: 20240906
  Receipt Date: 20240906
  Transmission Date: 20241017
  Serious: No
  Sender: DOMPE FARMACEUTICI
  Company Number: US-FARMAPROD-202308-202401-0084

PATIENT
  Sex: Female

DRUGS (3)
  1. OXERVATE [Suspect]
     Active Substance: CENEGERMIN-BKBJ
     Indication: Neurotrophic keratopathy
     Route: 047
     Dates: start: 20231214
  2. ESTRADIOL [Concomitant]
     Active Substance: ESTRADIOL
  3. ARTIFICIAL TEARS [Concomitant]
     Dosage: 0.1%-0.3%

REACTIONS (4)
  - Drug ineffective [Unknown]
  - Rhinalgia [Unknown]
  - Eye pain [Unknown]
  - Product dose omission issue [Unknown]
